FAERS Safety Report 8675238 (Version 2)
Quarter: 2012Q4

REPORT INFORMATION
  Report Type: 
  Country: US (occurrence: US)
  Receive Date: 20120720
  Receipt Date: 20121114
  Transmission Date: 20130627
  Serious: Yes (Other)
  Sender: FDA-Public Use
  Company Number: US-ASTRAZENECA-2012SE48218

PATIENT
  Age: 63 Year
  Sex: Male

DRUGS (1)
  1. NEXIUM [Suspect]
     Route: 048

REACTIONS (6)
  - Pituitary tumour [Unknown]
  - Neoplasm [Unknown]
  - Gastrooesophageal reflux disease [Unknown]
  - Adverse event [Unknown]
  - Headache [Unknown]
  - Malaise [Unknown]
